FAERS Safety Report 19196028 (Version 2)
Quarter: 2021Q2

REPORT INFORMATION
  Report Type: Report from Study
  Country: FR (occurrence: FR)
  Receive Date: 20210429
  Receipt Date: 20210607
  Transmission Date: 20210717
  Serious: Yes (Other)
  Sender: FDA-Public Use
  Company Number: FR-KYOWAKIRIN-2021BKK006760

PATIENT

DRUGS (2)
  1. POTELIGEO [Suspect]
     Active Substance: MOGAMULIZUMAB-KPKC
     Dosage: 24 MG, 1MG/KG
     Route: 042
  2. POTELIGEO [Suspect]
     Active Substance: MOGAMULIZUMAB-KPKC
     Indication: CUTANEOUS T-CELL LYMPHOMA STAGE IV
     Dosage: 24 MG, 1MG/KG
     Route: 042
     Dates: start: 20190612, end: 20190612

REACTIONS (6)
  - Hepatic cytolysis [Not Recovered/Not Resolved]
  - Infusion related reaction [Recovered/Resolved]
  - Cholestasis [Not Recovered/Not Resolved]
  - Eosinophilia [Recovered/Resolved]
  - Nausea [Recovered/Resolved]
  - Lymphopenia [Not Recovered/Not Resolved]

NARRATIVE: CASE EVENT DATE: 201906
